FAERS Safety Report 5168434-8 (Version None)
Quarter: 2006Q4

REPORT INFORMATION
  Report Type: 
  Country: None (occurrence: None)
  Receive Date: 20061208
  Receipt Date: 20061201
  Transmission Date: 20070319
  Serious: Yes (Other)
  Sender: FDA-Public Use
  Company Number: JP-BAYER-200616119GDS

PATIENT

DRUGS (2)
  1. ACARBOSE [Suspect]
     Indication: DRUG USE FOR UNKNOWN INDICATION
     Route: 065
  2. IKODEXTRIN [Concomitant]
     Indication: PERITONEAL DIALYSIS
     Route: 065

REACTIONS (4)
  - CARDIAC FAILURE [None]
  - DIALYSIS DEVICE COMPLICATION [None]
  - DISACCHARIDE METABOLISM DISORDER [None]
  - WEIGHT INCREASED [None]
